FAERS Safety Report 15555449 (Version 1)
Quarter: 2018Q4

REPORT INFORMATION
  Report Type: Spontaneous
  Country: JP (occurrence: JP)
  Receive Date: 20181026
  Receipt Date: 20181026
  Transmission Date: 20190205
  Serious: Yes (Death, Hospitalization)
  Sender: FDA-Public Use
  Company Number: JP-MYLANLABS-2018M1079169

PATIENT
  Age: 45 Year
  Sex: Male

DRUGS (1)
  1. DIPHENHYDRAMINE. [Suspect]
     Active Substance: DIPHENHYDRAMINE
     Indication: PRODUCT USED FOR UNKNOWN INDICATION
     Route: 048

REACTIONS (11)
  - Acidosis [Fatal]
  - Overdose [Fatal]
  - Rhabdomyolysis [Fatal]
  - Altered state of consciousness [Fatal]
  - Oxygen saturation decreased [Fatal]
  - Hepatic function abnormal [Fatal]
  - Renal impairment [Fatal]
  - Cardiac arrest [Fatal]
  - Blood pressure decreased [Fatal]
  - Heart rate decreased [Fatal]
  - Hypotension [Fatal]
